FAERS Safety Report 6215649-3 (Version None)
Quarter: 2009Q2

REPORT INFORMATION
  Report Type: 
  Country: None (occurrence: None)
  Receive Date: 20090605
  Receipt Date: 20090525
  Transmission Date: 20091009
  Serious: Yes (Hospitalization)
  Sender: FDA-Public Use
  Company Number: PHHY2008JP21903

PATIENT
  Sex: Male

DRUGS (6)
  1. GLEEVEC [Suspect]
     Indication: GASTROINTESTINAL STROMAL TUMOUR
     Dosage: 300 MG/DAY
     Route: 048
     Dates: start: 20070914, end: 20080808
  2. AMLODIPINE [Concomitant]
     Indication: SUPRAVENTRICULAR TACHYCARDIA
     Dosage: 2.5 MG
     Route: 048
     Dates: start: 20070804, end: 20080828
  3. ASPIRIN [Concomitant]
     Indication: SUPRAVENTRICULAR TACHYCARDIA
     Dosage: 2.5 MG
     Route: 048
     Dates: start: 20070804, end: 20080828
  4. LASIX [Concomitant]
     Indication: OEDEMA
     Dosage: 20 MG
     Route: 048
     Dates: start: 20080516, end: 20080828
  5. LASIX [Concomitant]
     Indication: PLEURAL EFFUSION
  6. BESACOLIN [Concomitant]
     Dosage: 800 MG
     Route: 048
     Dates: end: 20080828

REACTIONS (14)
  - ARRHYTHMIA [None]
  - ASCITES [None]
  - CARDIAC FAILURE [None]
  - CARDIAC VALVE DISEASE [None]
  - CARDIOMYOPATHY [None]
  - CATHETERISATION CARDIAC [None]
  - DIAPHRAGMATIC DISORDER [None]
  - DIASTOLIC DYSFUNCTION [None]
  - DYSPNOEA [None]
  - FATIGUE [None]
  - GENERALISED OEDEMA [None]
  - OEDEMA PERIPHERAL [None]
  - PLEURAL EFFUSION [None]
  - TACHYCARDIA [None]
